FAERS Safety Report 4342705-7 (Version None)
Quarter: 2004Q2

REPORT INFORMATION
  Report Type: 
  Country: None (occurrence: None)
  Receive Date: 20040416
  Receipt Date: 20040406
  Transmission Date: 20050107
  Serious: Yes (Hospitalization)
  Sender: FDA-Public Use
  Company Number: CIP04000375

PATIENT
  Age: 64 Year
  Sex: Female

DRUGS (2)
  1. BENET(RISEDRONATE SODIUM)TABLET 2.5 MG [Suspect]
     Indication: OSTEOPOROSIS
     Dosage: 2.5 MG DAILY, ORAL
     Route: 048
     Dates: start: 20030101, end: 20031220
  2. ALFACALCIDOL (ALFACALCIDOL) [Concomitant]

REACTIONS (10)
  - ANAEMIA [None]
  - BLOOD THYROID STIMULATING HORMONE DECREASED [None]
  - BONE MARROW DEPRESSION [None]
  - GASTRIC ULCER HAEMORRHAGE [None]
  - HAEMATEMESIS [None]
  - HELICOBACTER INFECTION [None]
  - MALLORY-WEISS SYNDROME [None]
  - MELAENA [None]
  - PLATELET COUNT DECREASED [None]
  - WHITE BLOOD CELL COUNT DECREASED [None]
